FAERS Safety Report 13548798 (Version 2)
Quarter: 2017Q3

REPORT INFORMATION
  Report Type: Spontaneous
  Country: IN (occurrence: IN)
  Receive Date: 20170516
  Receipt Date: 20170822
  Transmission Date: 20171127
  Serious: Yes (Other)
  Sender: FDA-Public Use
  Company Number: IN-SUN PHARMACEUTICAL INDUSTRIES LTD-2017R1-140400

PATIENT
  Age: 28 Year
  Sex: Female

DRUGS (3)
  1. DIGOXIN. [Suspect]
     Active Substance: DIGOXIN
     Indication: CORONARY ARTERY DISEASE
     Dosage: 0.25 MG, QD
     Route: 065
  2. FUROSEMIDE. [Concomitant]
     Active Substance: FUROSEMIDE
     Indication: CORONARY ARTERY DISEASE
     Dosage: 40 MG, 1/WEEK
     Route: 065
  3. ACITROM [Concomitant]
     Active Substance: ACENOCOUMAROL
     Indication: CORONARY ARTERY DISEASE
     Dosage: 2 MG, QD
     Route: 065

REACTIONS (1)
  - Gingival hypertrophy [Recovered/Resolved]
